FAERS Safety Report 9345993 (Version 1)
Quarter: 2013Q2

REPORT INFORMATION
  Report Type: Spontaneous
  Country: IT (occurrence: IT)
  Receive Date: 20130613
  Receipt Date: 20130613
  Transmission Date: 20140414
  Serious: Yes (Hospitalization)
  Sender: FDA-Public Use
  Company Number: IT-JNJFOC-20130601764

PATIENT
  Age: 84 Year
  Sex: Female

DRUGS (4)
  1. RISPERDAL [Suspect]
     Indication: PERSECUTORY DELUSION
     Route: 048
     Dates: start: 20130501, end: 20130517
  2. ATARAX [Concomitant]
     Indication: PRODUCT USED FOR UNKNOWN INDICATION
     Route: 065
  3. CALCIPARINE [Concomitant]
     Indication: PRODUCT USED FOR UNKNOWN INDICATION
     Route: 058
     Dates: start: 20130507, end: 20130520
  4. DEPONIT [Concomitant]
     Indication: PRODUCT USED FOR UNKNOWN INDICATION
     Route: 062

REACTIONS (1)
  - Sopor [Recovered/Resolved]
